FAERS Safety Report 15179977 (Version 2)
Quarter: 2020Q4

REPORT INFORMATION
  Report Type: Spontaneous
  Country: DE (occurrence: DE)
  Receive Date: 20180723
  Receipt Date: 20201214
  Transmission Date: 20210113
  Serious: Yes (Other)
  Sender: FDA-Public Use
  Company Number: DE-DRREDDYS-GER/GER/18/0102117

PATIENT
  Age: 31 Year
  Sex: Female
  Weight: 85 kg

DRUGS (7)
  1. SERTRALINE [Concomitant]
     Active Substance: SERTRALINE HYDROCHLORIDE
     Indication: DEPRESSION
     Dosage: 150 [MG/D ]
     Dates: start: 20170427, end: 20180118
  2. FEMIBION [Concomitant]
     Indication: PROPHYLAXIS OF NEURAL TUBE DEFECT
     Dosage: PROBABLY LONGER
     Dates: start: 20170427, end: 20170629
  3. CLOMIFENE [Concomitant]
     Active Substance: CLOMIPHENE
     Indication: ASSISTED FERTILISATION
  4. SALBUTAMOL [Concomitant]
     Active Substance: ALBUTEROL
     Indication: ASTHMA
     Dosage: 0-1-0
     Dates: start: 20170427, end: 20180118
  5. QUETIAPINE. [Suspect]
     Active Substance: QUETIAPINE
     Indication: BORDERLINE PERSONALITY DISORDER
     Dosage: 50 [MG/D ]
     Route: 048
     Dates: start: 20170427, end: 20180118
  6. SYMBICORT [Suspect]
     Active Substance: BUDESONIDE\FORMOTEROL FUMARATE DIHYDRATE
     Indication: ASTHMA
     Dosage: 1-0-1
     Dates: start: 20170427, end: 20180118
  7. LANTUS [Concomitant]
     Active Substance: INSULIN GLARGINE
     Indication: GESTATIONAL DIABETES
     Dosage: 16 [IE/D ]/ 16 IE ONCE DAILY (IN THE EVENING)

REACTIONS (2)
  - Exposure during pregnancy [Unknown]
  - Gestational diabetes [Recovered/Resolved]
